FAERS Safety Report 10236391 (Version 3)
Quarter: 2014Q4

REPORT INFORMATION
  Report Type: Report from Study
  Country: US (occurrence: US)
  Receive Date: 20140613
  Receipt Date: 20141219
  Transmission Date: 20150528
  Serious: Yes (Hospitalization, Other)
  Sender: FDA-Public Use
  Company Number: PHEH2014US003723

PATIENT
  Age: 59 Year
  Sex: Male

DRUGS (2)
  1. MYFORTIC [Suspect]
     Active Substance: MYCOPHENOLATE SODIUM
     Indication: RENAL TRANSPLANT
     Dosage: 2 DF, BID (EVERY 12 HOURS)
     Route: 048
     Dates: start: 20121116
  2. MYFORTIC [Suspect]
     Active Substance: MYCOPHENOLATE SODIUM
     Dosage: 720 MG, (EVERY 12 HOURS)
     Route: 048

REACTIONS (5)
  - Influenza [Unknown]
  - Kidney transplant rejection [Unknown]
  - Pneumonia [Unknown]
  - Malaise [Unknown]
  - Pulmonary oedema [Unknown]

NARRATIVE: CASE EVENT DATE: 20131220
